FAERS Safety Report 8811284 (Version 2)
Quarter: 2013Q4

REPORT INFORMATION
  Report Type: Spontaneous
  Country: GB (occurrence: GB)
  Receive Date: 20120927
  Receipt Date: 20131226
  Transmission Date: 20140711
  Serious: Yes (Other)
  Sender: FDA-Public Use
  Company Number: GB-JNJFOC-20100401564

PATIENT
  Sex: Female

DRUGS (5)
  1. DARUNAVIR [Suspect]
     Indication: HIV INFECTION
     Dosage: MEDICATION CODE NUMBER B0645917A
     Route: 048
     Dates: start: 20090310
  2. TRUVADA [Suspect]
     Indication: PRODUCT USED FOR UNKNOWN INDICATION
     Route: 048
  3. ISENTRESS [Concomitant]
     Indication: HIV INFECTION
     Route: 048
     Dates: start: 20090310
  4. RITONAVIR [Concomitant]
     Indication: HIV INFECTION
     Route: 048
     Dates: start: 20090310
  5. ZIDOVUDINE [Concomitant]
     Indication: HIV INFECTION
     Route: 048
     Dates: start: 20090318

REACTIONS (2)
  - Complication of delivery [Unknown]
  - Exposure during pregnancy [Recovered/Resolved]
